FAERS Safety Report 11339262 (Version 2)
Quarter: 2015Q3

REPORT INFORMATION
  Report Type: Report from Study
  Country: US (occurrence: US)
  Receive Date: 20150804
  Receipt Date: 20150907
  Transmission Date: 20151125
  Serious: No
  Sender: FDA-Public Use
  Company Number: US-AMGEN-USASP2015077125

PATIENT
  Age: 60 Year
  Sex: Female

DRUGS (1)
  1. ENBREL [Suspect]
     Active Substance: ETANERCEPT
     Indication: RHEUMATOID ARTHRITIS
     Dosage: 50 MG, QWK
     Route: 065

REACTIONS (8)
  - Crying [Unknown]
  - Feeling abnormal [Unknown]
  - Visual acuity reduced [Unknown]
  - Tremor [Unknown]
  - Mobility decreased [Unknown]
  - Device difficult to use [Unknown]
  - Device failure [Unknown]
  - Pain [Unknown]

NARRATIVE: CASE EVENT DATE: 201507
